FAERS Safety Report 16766713 (Version 1)
Quarter: 2019Q4

REPORT INFORMATION
  Report Type: Spontaneous
  Country: US (occurrence: US)
  Receive Date: 20190901
  Receipt Date: 20190901
  Transmission Date: 20200122
  Serious: No
  Sender: FDA-Public Use
  Company Number: None

PATIENT
  Age: 15 Year
  Sex: Male
  Weight: 63 kg

DRUGS (1)
  1. MONTELUKAST 10 MG [Suspect]
     Active Substance: MONTELUKAST SODIUM
     Indication: MULTIPLE ALLERGIES
     Dosage: ?          QUANTITY:1 TABLET(S);?
     Route: 048
     Dates: start: 20061210, end: 20190810

REACTIONS (11)
  - Intentional product use issue [None]
  - Product formulation issue [None]
  - School refusal [None]
  - Suicidal ideation [None]
  - Anxiety [None]
  - Panic attack [None]
  - Tremor [None]
  - Feeling guilty [None]
  - Social avoidant behaviour [None]
  - Intrusive thoughts [None]
  - Violence-related symptom [None]

NARRATIVE: CASE EVENT DATE: 20190801
